FAERS Safety Report 6938244-7 (Version None)
Quarter: 2010Q3

REPORT INFORMATION
  Report Type: 
  Country: None (occurrence: None)
  Receive Date: 20100824
  Receipt Date: 20100302
  Transmission Date: 20110219
  Serious: No
  Sender: FDA-Public Use
  Company Number: A0844947A

PATIENT
  Age: 65 Year
  Sex: Female
  Weight: 63.6 kg

DRUGS (4)
  1. MALARONE [Suspect]
     Indication: MALARIA PROPHYLAXIS
     Dosage: 1TBS PER DAY
     Route: 048
     Dates: start: 20100120, end: 20100201
  2. PRAVASTATIN [Concomitant]
  3. MULTI-VITAMIN [Concomitant]
  4. ACETAZOLAMIDE [Concomitant]

REACTIONS (1)
  - DIARRHOEA [None]
